FAERS Safety Report 7492657-6 (Version None)
Quarter: 2011Q2

REPORT INFORMATION
  Report Type: 
  Country: None (occurrence: None)
  Receive Date: 20110519
  Receipt Date: 20110414
  Transmission Date: 20111010
  Serious: Yes (Death, Other)
  Sender: FDA-Public Use
  Company Number: US-BAYER-200934339NA

PATIENT
  Age: 71 Year
  Sex: Male
  Weight: 85 kg

DRUGS (8)
  1. HYZAAR [Concomitant]
     Dosage: 10D/25
     Dates: start: 20050101
  2. HEPARIN [Concomitant]
     Dosage: UNK
     Dates: start: 20050531
  3. NITROGLYCERIN [Concomitant]
     Dosage: UNK
     Dates: start: 20050531
  4. TOPROL-XL [Concomitant]
     Dosage: 50 MG, QD
     Dates: start: 20050101
  5. PRAVACHOL [Concomitant]
     Dosage: 20 MG, QD
     Dates: start: 20050101
  6. LANTUS [Concomitant]
     Dosage: 30 U, QD
     Route: 058
     Dates: start: 20050101
  7. TRASYLOL [Suspect]
     Indication: CORONARY ARTERY BYPASS
     Dosage: UNK
     Route: 042
     Dates: start: 20050603
  8. AVANDIA [Concomitant]
     Dosage: 4 MG, QD
     Dates: start: 20050101

REACTIONS (14)
  - MULTI-ORGAN FAILURE [None]
  - PAIN [None]
  - INJURY [None]
  - RENAL INJURY [None]
  - RENAL FAILURE [None]
  - ANHEDONIA [None]
  - DISABILITY [None]
  - ANXIETY [None]
  - EMOTIONAL DISTRESS [None]
  - DEATH [None]
  - FEAR [None]
  - UNEVALUABLE EVENT [None]
  - DEPRESSION [None]
  - NERVOUSNESS [None]
